FAERS Safety Report 7741884-9 (Version None)
Quarter: 2011Q3

REPORT INFORMATION
  Report Type: 
  Country: None (occurrence: None)
  Receive Date: 20110912
  Receipt Date: 20110829
  Transmission Date: 20111222
  Serious: Yes (Other)
  Sender: FDA-Public Use
  Company Number: US-JNJFOC-20110712218

PATIENT
  Sex: Female
  Weight: 62.14 kg

DRUGS (8)
  1. ASCORBIC ACID [Concomitant]
  2. BALSALAZIDE DISODIUM [Concomitant]
  3. REMICADE [Suspect]
     Indication: COLITIS ULCERATIVE
     Route: 042
     Dates: start: 20110727, end: 20110727
  4. REMICADE [Suspect]
     Route: 042
     Dates: start: 20100101
  5. LECITHIN [Concomitant]
  6. TRI-SPRINTEC [Concomitant]
     Indication: CONTRACEPTION
  7. IMURAN [Concomitant]
  8. MULTI-VITAMINS [Concomitant]

REACTIONS (6)
  - DYSPNOEA [None]
  - APHASIA [None]
  - FLUSHING [None]
  - INFUSION RELATED REACTION [None]
  - DYSPHAGIA [None]
  - CHEST DISCOMFORT [None]
